FAERS Safety Report 4524853-1 (Version None)
Quarter: 2004Q4

REPORT INFORMATION
  Report Type: 
  Country: None (occurrence: None)
  Receive Date: 20041117
  Receipt Date: 20031120
  Transmission Date: 20050328
  Serious: Yes (Other)
  Sender: FDA-Public Use
  Company Number: C2003-3078.01

PATIENT
  Age: 21 Year
  Sex: Female

DRUGS (3)
  1. CLOZAPINE [Suspect]
     Indication: SCHIZOPHRENIA
     Dosage: 25MG Q HS, ORAL
     Route: 048
     Dates: start: 20030710
  2. CLOZAPINE [Suspect]
     Indication: SCHIZOPHRENIA
     Dosage: 200MG Q HS, ORAL
     Route: 048
     Dates: start: 20030710
  3. BENZTROPINE MESYLATE [Concomitant]

REACTIONS (1)
  - WHITE BLOOD CELL COUNT DECREASED [None]
